FAERS Safety Report 25095692 (Version 1)
Quarter: 2025Q1

REPORT INFORMATION
  Report Type: Spontaneous
  Country: DE (occurrence: DE)
  Receive Date: 20250319
  Receipt Date: 20250319
  Transmission Date: 20250408
  Serious: Yes (Other)
  Sender: TEVA
  Company Number: DE-TEVA-VS-3309542

PATIENT
  Age: 73 Year
  Sex: Male

DRUGS (1)
  1. SULFAMETHOXAZOLE\TRIMETHOPRIM [Suspect]
     Active Substance: SULFAMETHOXAZOLE\TRIMETHOPRIM
     Indication: Product used for unknown indication
     Route: 048

REACTIONS (3)
  - Drug hypersensitivity [Recovered/Resolved]
  - Chills [Recovered/Resolved]
  - Pulse abnormal [Recovered/Resolved]

NARRATIVE: CASE EVENT DATE: 20250201
